FAERS Safety Report 9565061 (Version 1)
Quarter: 2013Q3

REPORT INFORMATION
  Report Type: Spontaneous
  Country: CN (occurrence: CN)
  Receive Date: 20130930
  Receipt Date: 20130930
  Transmission Date: 20140515
  Serious: Yes (Other)
  Sender: FDA-Public Use
  Company Number: CN-PFIZER INC-2013277169

PATIENT
  Age: 32 Year
  Sex: Female
  Weight: 70 kg

DRUGS (1)
  1. HEMABATE [Suspect]
     Indication: UTERINE ATONY
     Dosage: 250 UG, ONCE DAILY
     Route: 042
     Dates: start: 20121102, end: 20121102

REACTIONS (1)
  - Hyperpyrexia [Recovering/Resolving]
